FAERS Safety Report 20966778 (Version 1)
Quarter: 2022Q2

REPORT INFORMATION
  Report Type: Spontaneous
  Country: US (occurrence: US)
  Receive Date: 20220616
  Receipt Date: 20220616
  Transmission Date: 20220720
  Serious: Yes (Hospitalization, Other)
  Sender: FDA-Public Use
  Company Number: US-GLAXOSMITHKLINE-US2022091114

PATIENT

DRUGS (1)
  1. ANORO ELLIPTA [Suspect]
     Active Substance: UMECLIDINIUM BROMIDE\VILANTEROL TRIFENATATE
     Indication: Dyspnoea
     Dosage: UNK (62.525MCG INH 60)
     Route: 055
     Dates: start: 20211025

REACTIONS (3)
  - Pneumonia [Recovered/Resolved]
  - Lung disorder [Unknown]
  - Product use in unapproved indication [Unknown]
